FAERS Safety Report 11977235 (Version 2)
Quarter: 2016Q1

REPORT INFORMATION
  Report Type: Spontaneous
  Country: US (occurrence: US)
  Receive Date: 20160129
  Receipt Date: 20160201
  Transmission Date: 20160526
  Serious: No
  Sender: FDA-Public Use
  Company Number: US-GLAXOSMITHKLINE-US2016007754

PATIENT
  Sex: Male

DRUGS (5)
  1. VERAMYST [Concomitant]
     Active Substance: FLUTICASONE FUROATE
     Dosage: UNK
  2. FLONASE [Suspect]
     Active Substance: FLUTICASONE PROPIONATE
     Indication: SEASONAL ALLERGY
     Dosage: 2 PUFF(S), 1D
     Route: 045
     Dates: start: 200601, end: 200806
  3. FLONASE [Suspect]
     Active Substance: FLUTICASONE PROPIONATE
     Dosage: UNK
  4. NASONEX [Suspect]
     Active Substance: MOMETASONE FUROATE
     Indication: PRODUCT USED FOR UNKNOWN INDICATION
     Dosage: UNK
  5. RHINOCORT AQUA [Suspect]
     Active Substance: BUDESONIDE
     Indication: PRODUCT USED FOR UNKNOWN INDICATION
     Dosage: UNK

REACTIONS (2)
  - Headache [Not Recovered/Not Resolved]
  - Drug ineffective [Unknown]
